FAERS Safety Report 15168347 (Version 1)
Quarter: 2018Q3

REPORT INFORMATION
  Report Type: Spontaneous
  Country: US (occurrence: US)
  Receive Date: 20180719
  Receipt Date: 20180719
  Transmission Date: 20181010
  Serious: Yes (Other)
  Sender: FDA-Public Use
  Company Number: US-NOVOPROD-610963

PATIENT
  Sex: Female

DRUGS (1)
  1. NOVOLOG [Suspect]
     Active Substance: INSULIN ASPART
     Indication: TYPE 2 DIABETES MELLITUS
     Dosage: SLIDING SCALE
     Route: 058

REACTIONS (8)
  - Eye operation [Unknown]
  - General physical health deterioration [Not Recovered/Not Resolved]
  - Injection site abscess [Unknown]
  - Retinal haemorrhage [Unknown]
  - Fatigue [Unknown]
  - Drug ineffective [Unknown]
  - Weight increased [Unknown]
  - Blood glucose increased [Not Recovered/Not Resolved]
